FAERS Safety Report 8093428-2 (Version None)
Quarter: 2012Q1

REPORT INFORMATION
  Report Type: 
  Country: None (occurrence: None)
  Receive Date: 20120128
  Receipt Date: 20111013
  Transmission Date: 20120608
  Serious: No
  Sender: FDA-Public Use
  Company Number: US-ABBOTT-11P-163-0848359-00

PATIENT
  Sex: Female

DRUGS (7)
  1. PROGESTERONE [Concomitant]
     Indication: PRODUCT USED FOR UNKNOWN INDICATION
     Dosage: AT BEDTIME
     Route: 061
     Dates: start: 20080101
  2. HUMIRA [Suspect]
     Indication: PSORIATIC ARTHROPATHY
     Dosage: DAY 8
  3. LEVOTHROID [Concomitant]
     Indication: THYROID DISORDER
     Dates: start: 20080101
  4. TESTOSTERONE [Concomitant]
     Indication: PRODUCT USED FOR UNKNOWN INDICATION
     Dosage: 0.5CC ONCE DAILY
     Dates: start: 20080101
  5. BI-EST 50/50 [Concomitant]
     Indication: PRODUCT USED FOR UNKNOWN INDICATION
     Route: 061
  6. HUMIRA [Suspect]
     Indication: PSORIASIS
     Dosage: DAY 1
     Dates: start: 20110728
  7. HUMIRA [Suspect]

REACTIONS (2)
  - DRUG INEFFECTIVE [None]
  - PSORIASIS [None]
